FAERS Safety Report 12094966 (Version 1)
Quarter: 2016Q1

REPORT INFORMATION
  Report Type: Spontaneous
  Country: DE (occurrence: DE)
  Receive Date: 20160219
  Receipt Date: 20160219
  Transmission Date: 20160526
  Serious: No
  Sender: FDA-Public Use
  Company Number: DE-PERNIX THERAPEUTICS-2015PT000168

PATIENT

DRUGS (3)
  1. XYLOMETAZOLINE HYDROCHLORIDE [Concomitant]
     Active Substance: XYLOMETAZOLINE HYDROCHLORIDE
     Dosage: UNK
     Dates: start: 20150305
  2. KEIMAX [Suspect]
     Active Substance: CEFTIBUTEN
     Dosage: 400 MG, DAILY
     Route: 048
     Dates: start: 20150312
  3. KEIMAX [Suspect]
     Active Substance: CEFTIBUTEN
     Indication: SINUSITIS
     Dosage: 400 MG, TWICE DAILY
     Route: 048
     Dates: start: 20150307, end: 20150311

REACTIONS (1)
  - Prescribed overdose [Recovered/Resolved]

NARRATIVE: CASE EVENT DATE: 20150307
